FAERS Safety Report 5168384-7 (Version None)
Quarter: 2006Q4

REPORT INFORMATION
  Report Type: 
  Country: None (occurrence: None)
  Receive Date: 20061208
  Receipt Date: 20061128
  Transmission Date: 20070319
  Serious: Yes (Death)
  Sender: FDA-Public Use
  Company Number: CA-ROCHE-472866

PATIENT
  Age: 95 Year
  Sex: Female
  Weight: 59 kg

DRUGS (17)
  1. TAMIFLU [Suspect]
     Indication: DRUG USE FOR UNKNOWN INDICATION
     Route: 048
  2. ALTACE [Concomitant]
     Route: 048
  3. COLACE [Concomitant]
     Route: 048
  4. LASIX [Concomitant]
     Route: 048
  5. ATIVAN [Concomitant]
     Route: 048
  6. NORTRIPTYLINE HCL [Concomitant]
     Route: 048
  7. SERAX [Concomitant]
     Route: 048
  8. MULTI-VITAMIN [Concomitant]
     Route: 048
  9. GRAVOL TAB [Concomitant]
  10. ISOPTO TEARS [Concomitant]
     Route: 047
  11. MILK OF MAGNESIA [Concomitant]
     Route: 048
  12. LACTULOSE [Concomitant]
  13. ANTACID TAB [Concomitant]
  14. PARIET [Concomitant]
     Route: 048
  15. ENTROPHEN [Concomitant]
     Route: 048
  16. NOZINAN [Concomitant]
     Route: 048
  17. TYLENOL [Concomitant]

REACTIONS (4)
  - CHOKING [None]
  - DEATH [None]
  - DIARRHOEA [None]
  - MALAISE [None]
